FAERS Safety Report 5965074-5 (Version None)
Quarter: 2008Q4

REPORT INFORMATION
  Report Type: 
  Country: None (occurrence: None)
  Receive Date: 20081124
  Receipt Date: 20081124
  Transmission Date: 20090506
  Serious: Yes (Hospitalization)
  Sender: FDA-Public Use
  Company Number: None

PATIENT
  Sex: Male
  Weight: 99 kg

DRUGS (2)
  1. CYTARABINE [Suspect]
     Dosage: 1760 MG
  2. DAUNORUBICIN [Suspect]
     Dosage: 390 MG
     Dates: end: 20081118

REACTIONS (5)
  - BLOOD CULTURE POSITIVE [None]
  - FEBRILE NEUTROPENIA [None]
  - HYPOTENSION [None]
  - PYREXIA [None]
  - STAPHYLOCOCCAL INFECTION [None]
